FAERS Safety Report 8604948-3 (Version None)
Quarter: 2012Q3

REPORT INFORMATION
  Report Type: 
  Country: None (occurrence: None)
  Receive Date: 20120820
  Receipt Date: 20120813
  Transmission Date: 20120928
  Serious: Yes (Hospitalization, Other)
  Sender: FDA-Public Use
  Company Number: BR-PFIZER INC-2012197239

PATIENT
  Age: 58 Year
  Sex: Male
  Weight: 101 kg

DRUGS (3)
  1. NORVASC [Concomitant]
     Indication: BLOOD PRESSURE INCREASED
     Dosage: 5 MG, 2X/DAY
     Dates: start: 20111213
  2. VIAGRA [Suspect]
     Dosage: 50 MG (ONE TABLET), 1X/DAY
     Route: 048
  3. OLMESARTAN MEDOXOMIL AND HYDROCHLOROTHIZIDE [Concomitant]
     Indication: BLOOD PRESSURE INCREASED
     Dosage: 1 TABLET (OLMESARTAN MEDOXOMIL 40MG/HYDROCHLOROTHIAZIDE 12.5MG) DAILY
     Dates: start: 20111213

REACTIONS (1)
  - PROSTATE CANCER [None]
